FAERS Safety Report 7867795-6 (Version None)
Quarter: 2011Q4

REPORT INFORMATION
  Report Type: 
  Country: None (occurrence: None)
  Receive Date: 20111028
  Receipt Date: 20111025
  Transmission Date: 20120403
  Serious: Yes (Hospitalization)
  Sender: FDA-Public Use
  Company Number: JP-BRISTOL-MYERS SQUIBB COMPANY-15399108

PATIENT
  Age: 74 Year
  Sex: Female

DRUGS (5)
  1. PREDNISOLONE [Concomitant]
     Indication: RHEUMATOID ARTHRITIS
  2. ORENCIA [Suspect]
     Indication: RHEUMATOID ARTHRITIS
     Dosage: 18-OCT-2010
     Route: 041
     Dates: start: 20101004
  3. FOLIC ACID [Concomitant]
     Indication: PROPHYLAXIS
  4. RHEUMATREX [Suspect]
  5. BUCILLAMINE [Concomitant]

REACTIONS (2)
  - DIARRHOEA [None]
  - DEPRESSED LEVEL OF CONSCIOUSNESS [None]
